FAERS Safety Report 8013423-9 (Version None)
Quarter: 2011Q4

REPORT INFORMATION
  Report Type: 
  Country: None (occurrence: None)
  Receive Date: 20111229
  Receipt Date: 20111220
  Transmission Date: 20120403
  Serious: Yes (Hospitalization)
  Sender: FDA-Public Use
  Company Number: US-BAYER-2010-006491

PATIENT
  Age: 47 Year
  Sex: Female
  Weight: 73 kg

DRUGS (5)
  1. ZYRTEC [Concomitant]
     Dosage: UNK
     Dates: start: 20000101
  2. WELLBUTRIN [Concomitant]
     Dosage: UNK
     Dates: start: 20000101
  3. YAZ [Suspect]
     Indication: MENORRHAGIA
     Dosage: UNK
     Route: 048
     Dates: start: 20061101, end: 20071201
  4. EFFEXOR [Concomitant]
     Dosage: UNK
     Dates: start: 20060101, end: 20081201
  5. BUSPAR [Concomitant]
     Dosage: 7.5 MG, BID
     Route: 048

REACTIONS (6)
  - DYSPNOEA [None]
  - PAIN [None]
  - DEPRESSION [None]
  - ANXIETY [None]
  - PULMONARY EMBOLISM [None]
  - EMOTIONAL DISTRESS [None]
